FAERS Safety Report 4885154-5 (Version None)
Quarter: 2006Q1

REPORT INFORMATION
  Report Type: 
  Country: None (occurrence: None)
  Receive Date: 20060117
  Receipt Date: 20060109
  Transmission Date: 20060701
  Serious: Yes (Other)
  Sender: FDA-Public Use
  Company Number: 200513672BCC

PATIENT
  Age: 63 Year
  Sex: Female
  Weight: 89.3586 kg

DRUGS (9)
  1. ALEVE [Suspect]
     Indication: ARTHRITIS
     Dosage: 220 MG, PRN, ORAL
     Route: 048
     Dates: start: 19970101, end: 20050206
  2. ASPIRIN [Suspect]
     Indication: ARTHRALGIA
     Dosage: 650 MG; 325 MG, QD, ORAL
     Route: 048
     Dates: start: 20050811
  3. ASPIRIN [Suspect]
     Indication: MYOCARDIAL INFARCTION
     Dosage: 650 MG; 325 MG, QD, ORAL
     Route: 048
     Dates: start: 20050811
  4. ASPIRIN [Suspect]
     Indication: PROPHYLAXIS
     Dosage: 650 MG; 325 MG, QD, ORAL
     Route: 048
     Dates: start: 20050811
  5. ASPIRIN [Suspect]
     Indication: ARTHRALGIA
     Dosage: 650 MG; 325 MG, QD, ORAL
     Route: 048
     Dates: start: 20050828
  6. ASPIRIN [Suspect]
     Indication: MYOCARDIAL INFARCTION
     Dosage: 650 MG; 325 MG, QD, ORAL
     Route: 048
     Dates: start: 20050828
  7. ASPIRIN [Suspect]
     Indication: PROPHYLAXIS
     Dosage: 650 MG; 325 MG, QD, ORAL
     Route: 048
     Dates: start: 20050828
  8. LIPITOR [Concomitant]
  9. PROZAC [Concomitant]

REACTIONS (4)
  - GASTRIC HAEMORRHAGE [None]
  - GASTRIC ULCER [None]
  - LOSS OF CONSCIOUSNESS [None]
  - ULCER HAEMORRHAGE [None]
